FAERS Safety Report 15026595 (Version 1)
Quarter: 2018Q2

REPORT INFORMATION
  Report Type: Report from Study
  Country: None (occurrence: CO)
  Receive Date: 20180618
  Receipt Date: 20180618
  Transmission Date: 20180711
  Serious: Yes (Hospitalization)
  Sender: FDA-Public Use
  Company Number: CO-ABBVIE-18K-036-2391746-00

PATIENT
  Age: 42 Year
  Sex: Male
  Weight: 74 kg

DRUGS (1)
  1. HUMIRA [Suspect]
     Active Substance: ADALIMUMAB
     Indication: CROHN^S DISEASE
     Route: 058
     Dates: start: 20170517

REACTIONS (2)
  - Gastric disorder [Recovering/Resolving]
  - Amoebic colitis [Recovering/Resolving]

NARRATIVE: CASE EVENT DATE: 20180605
